FAERS Safety Report 24117131 (Version 1)
Quarter: 2024Q3

REPORT INFORMATION
  Report Type: Spontaneous
  Country: FR (occurrence: FR)
  Receive Date: 20240722
  Receipt Date: 20240722
  Transmission Date: 20241016
  Serious: Yes (Other)
  Sender: AUROBINDO
  Company Number: FR-AFSSAPS-RE2024000689

PATIENT
  Age: 83 Year
  Sex: Female
  Weight: 56 kg

DRUGS (8)
  1. CANDESARTAN CILEXETIL [Suspect]
     Active Substance: CANDESARTAN CILEXETIL
     Indication: Hypertension
     Dosage: 16 MILLIGRAM, ONCE A DAY
     Route: 048
  2. HYDROCHLOROTHIAZIDE [Suspect]
     Active Substance: HYDROCHLOROTHIAZIDE
     Indication: Hypertension
     Dosage: 12.5 MILLIGRAM, ONCE A DAY
     Route: 048
     Dates: end: 20231215
  3. SERTRALINE HYDROCHLORIDE [Suspect]
     Active Substance: SERTRALINE HYDROCHLORIDE
     Indication: Mental disorder
     Dosage: 25 MILLIGRAM, ONCE A DAY
     Route: 048
     Dates: end: 20231215
  4. LANSOPRAZOLE [Suspect]
     Active Substance: LANSOPRAZOLE
     Indication: Gastrooesophageal reflux disease
     Dosage: 15 MILLIGRAM, ONCE A DAY
     Route: 048
     Dates: end: 20231215
  5. POLYETHYLENE GLYCOLS [Suspect]
     Active Substance: POLYETHYLENE GLYCOLS
     Indication: Constipation
     Dosage: 20 GRAM, ONCE A DAY
     Route: 048
  6. MORPHINE SULFATE [Concomitant]
     Active Substance: MORPHINE SULFATE
     Indication: Product used for unknown indication
     Dosage: UNK
     Route: 065
  7. DOLIPRANE [Concomitant]
     Active Substance: ACETAMINOPHEN
     Indication: Product used for unknown indication
     Dosage: UNK
     Route: 065
  8. LEVOTHYROXINE [Concomitant]
     Active Substance: LEVOTHYROXINE\LEVOTHYROXINE SODIUM
     Indication: Product used for unknown indication
     Dosage: UNK
     Route: 065

REACTIONS (1)
  - Hyponatraemia [Recovered/Resolved]

NARRATIVE: CASE EVENT DATE: 20231215
